FAERS Safety Report 10452431 (Version 1)
Quarter: 2014Q3

REPORT INFORMATION
  Report Type: Spontaneous
  Country: US (occurrence: None)
  Receive Date: 20140912
  Receipt Date: 20140912
  Transmission Date: 20150326
  Serious: No
  Sender: FDA-Public Use
  Company Number: None

PATIENT
  Sex: Female

DRUGS (2)
  1. AMITRIPTYLINE 200MG [Suspect]
     Active Substance: AMITRIPTYLINE
  2. AMITRIPTYLINE 20 [Suspect]
     Active Substance: AMITRIPTYLINE

REACTIONS (4)
  - Incorrect dose administered [None]
  - Hallucination [None]
  - Hypersomnia [None]
  - Drug dispensing error [None]
